FAERS Safety Report 20017491 (Version 1)
Quarter: 2021Q4

REPORT INFORMATION
  Report Type: Spontaneous
  Country: CA (occurrence: CA)
  Receive Date: 20211030
  Receipt Date: 20211030
  Transmission Date: 20220303
  Serious: Yes (Other)
  Sender: FDA-Public Use
  Company Number: CA-TEVA-2021-CA-1969701

PATIENT
  Age: 55 Year
  Sex: Male

DRUGS (3)
  1. AMIODARONE [Interacting]
     Active Substance: AMIODARONE
     Route: 065
  2. ATORVASTATIN [Interacting]
     Active Substance: ATORVASTATIN
     Indication: Prophylaxis
     Dosage: 80 MILLIGRAM DAILY;
     Route: 065
  3. CIPROFLOXACIN [Interacting]
     Active Substance: CIPROFLOXACIN
     Indication: Pneumonia
     Dosage: 3000 MILLIGRAM DAILY;
     Route: 048

REACTIONS (8)
  - Blood creatine increased [Recovered/Resolved]
  - Blood creatine phosphokinase increased [Recovered/Resolved]
  - Blood lactate dehydrogenase increased [Recovered/Resolved]
  - Chromaturia [Recovered/Resolved]
  - Myoglobin urine present [Recovered/Resolved]
  - Pneumonia [Recovered/Resolved]
  - Rhabdomyolysis [Recovered/Resolved]
  - Drug interaction [Recovered/Resolved]
